FAERS Safety Report 7103845-2 (Version None)
Quarter: 2010Q4

REPORT INFORMATION
  Report Type: 
  Country: None (occurrence: None)
  Receive Date: 20101115
  Receipt Date: 20101112
  Transmission Date: 20110411
  Serious: Yes (Congenital Anomaly, Other)
  Sender: FDA-Public Use
  Company Number: US-PFIZER INC-2010092572

PATIENT
  Sex: Male
  Weight: 3.029 kg

DRUGS (6)
  1. ZOLOFT [Suspect]
     Dosage: UNK
     Route: 064
  2. CELEXA [Concomitant]
     Indication: DEPRESSION
     Dosage: 20 MG, UNK
     Route: 048
  3. ALBUTEROL [Concomitant]
     Indication: ASTHMA
     Dosage: UNK
  4. TYLENOL W/ CODEINE [Concomitant]
     Indication: PAIN
     Dosage: UNK
     Dates: start: 20031115
  5. PRENATAL VITAMINS [Concomitant]
     Dosage: UNK
  6. IRON [Concomitant]
     Dosage: UNK

REACTIONS (2)
  - ANOMALOUS PULMONARY VENOUS CONNECTION [None]
  - DRUG EXPOSURE DURING PREGNANCY [None]
